FAERS Safety Report 11229617 (Version 1)
Quarter: 2015Q2

REPORT INFORMATION
  Report Type: Spontaneous
  Country: US (occurrence: US)
  Receive Date: 20150630
  Receipt Date: 20150630
  Transmission Date: 20150821
  Serious: Yes (Other)
  Sender: FDA-Public Use
  Company Number: US-ABBVIE-15P-163-1415622-00

PATIENT
  Age: 30 Year
  Sex: Male
  Weight: 86.26 kg

DRUGS (3)
  1. DEPAKOTE ER [Suspect]
     Active Substance: DIVALPROEX SODIUM
     Dosage: GIVEN 500MG AND THEN 1000MG
     Route: 048
     Dates: start: 20150620, end: 20150620
  2. DEPAKOTE ER [Suspect]
     Active Substance: DIVALPROEX SODIUM
     Route: 048
     Dates: start: 2015
  3. DEPAKOTE ER [Suspect]
     Active Substance: DIVALPROEX SODIUM
     Indication: GENERALISED TONIC-CLONIC SEIZURE
     Dosage: MISSED DOSES
     Route: 048
     Dates: start: 1998, end: 201506

REACTIONS (3)
  - Drug dose omission [Recovered/Resolved]
  - Off label use [Unknown]
  - Clonic convulsion [Recovered/Resolved]

NARRATIVE: CASE EVENT DATE: 201506
